FAERS Safety Report 25793802 (Version 1)
Quarter: 2025Q3

REPORT INFORMATION
  Report Type: Spontaneous
  Country: US (occurrence: US)
  Receive Date: 20250912
  Receipt Date: 20250912
  Transmission Date: 20251021
  Serious: No
  Sender: ALEXION PHARMACEUTICALS
  Company Number: US-AstraZeneca-CH-00945717AP

PATIENT
  Sex: Male

DRUGS (1)
  1. WAINUA [Suspect]
     Active Substance: EPLONTERSEN
     Route: 065

REACTIONS (5)
  - Muscular weakness [Unknown]
  - Dry eye [Unknown]
  - Product dose omission issue [Unknown]
  - Product use issue [Unknown]
  - Product use issue [Unknown]
